FAERS Safety Report 5824717-7 (Version None)
Quarter: 2008Q3

REPORT INFORMATION
  Report Type: 
  Country: None (occurrence: None)
  Receive Date: 20080728
  Receipt Date: 20080721
  Transmission Date: 20090109
  Serious: Yes (Other)
  Sender: FDA-Public Use
  Company Number: US-SANOFI-SYNTHELABO-A03200802909

PATIENT
  Age: 78 Year
  Sex: Male

DRUGS (1)
  1. PLAVIX [Suspect]
     Indication: HEART INJURY
     Route: 048
     Dates: start: 20071101

REACTIONS (3)
  - CHEST DISCOMFORT [None]
  - NIGHT SWEATS [None]
  - PULMONARY GRANULOMA [None]
